FAERS Safety Report 24825912 (Version 1)
Quarter: 2025Q1

REPORT INFORMATION
  Report Type: Spontaneous
  Country: US (occurrence: US)
  Receive Date: 20250109
  Receipt Date: 20250109
  Transmission Date: 20250409
  Serious: No
  Sender: LUPIN
  Company Number: US-LUPIN PHARMACEUTICALS INC.-2024-13312

PATIENT

DRUGS (1)
  1. ALBUTEROL SULFATE [Suspect]
     Active Substance: ALBUTEROL SULFATE
     Indication: Bronchial hyperreactivity
     Dates: start: 202412

REACTIONS (3)
  - Wrong technique in product usage process [Unknown]
  - Product use in unapproved indication [Unknown]
  - No adverse event [Unknown]
